FAERS Safety Report 8421268-0 (Version None)
Quarter: 2012Q2

REPORT INFORMATION
  Report Type: 
  Country: None (occurrence: None)
  Receive Date: 20120608
  Receipt Date: 20120605
  Transmission Date: 20120825
  Serious: Yes (Other)
  Sender: FDA-Public Use
  Company Number: VE-PFIZER INC-2012131464

PATIENT
  Age: 52 Year
  Sex: Female

DRUGS (3)
  1. LYRICA [Suspect]
     Indication: INTERVERTEBRAL DISC PROTRUSION
     Dosage: 75 MG, 1X/DAY
     Route: 048
     Dates: start: 20120101
  2. LIPITOR [Suspect]
     Dosage: 20 MG, 1X/DAY
     Route: 048
  3. DIOVAN HCT [Suspect]
     Indication: HYPERTENSION
     Route: 048

REACTIONS (1)
  - INTERVERTEBRAL DISC PROTRUSION [None]
